FAERS Safety Report 9699672 (Version 1)
Quarter: 2013Q4

REPORT INFORMATION
  Report Type: Spontaneous
  Country: US (occurrence: US)
  Receive Date: 20131120
  Receipt Date: 20131120
  Transmission Date: 20140711
  Serious: No
  Sender: FDA-Public Use
  Company Number: US-TEVA-370750USA

PATIENT
  Age: 24 Year
  Sex: Female
  Weight: 66.28 kg

DRUGS (2)
  1. PARAGARD 380A [Suspect]
     Indication: CONTRACEPTION
     Route: 015
     Dates: start: 20121003, end: 20121114
  2. ADDERALL [Concomitant]
     Indication: ATTENTION DEFICIT/HYPERACTIVITY DISORDER

REACTIONS (3)
  - Menorrhagia [Recovered/Resolved]
  - Uterine spasm [Unknown]
  - Device expulsion [Recovered/Resolved]
